FAERS Safety Report 14352472 (Version 2)
Quarter: 2018Q1

REPORT INFORMATION
  Report Type: Report from Study
  Country: US (occurrence: US)
  Receive Date: 20180104
  Receipt Date: 20180312
  Transmission Date: 20180509
  Serious: Yes (Hospitalization)
  Sender: FDA-Public Use
  Company Number: US-ACTELION-A-US2018-165176

PATIENT
  Age: 54 Year
  Sex: Female

DRUGS (7)
  1. FUROSEMIDE. [Concomitant]
     Active Substance: FUROSEMIDE
  2. HYDROXYCHLOROQUINE [Concomitant]
     Active Substance: HYDROXYCHLOROQUINE
  3. ZOLPIDEM [Concomitant]
     Active Substance: ZOLPIDEM\ZOLPIDEM TARTRATE
  4. SILDENAFIL. [Concomitant]
     Active Substance: SILDENAFIL
  5. LISINOPRIL. [Concomitant]
     Active Substance: LISINOPRIL
  6. OPSUMIT [Suspect]
     Active Substance: MACITENTAN
     Indication: PULMONARY HYPERTENSION
     Dosage: 10 MG, QD
     Route: 048
     Dates: start: 20170725
  7. NAPROXEN. [Concomitant]
     Active Substance: NAPROXEN

REACTIONS (1)
  - Pneumonia [Not Recovered/Not Resolved]
